FAERS Safety Report 9820614 (Version 1)
Quarter: 2013Q4

REPORT INFORMATION
  Report Type: Spontaneous
  Country: US (occurrence: None)
  Receive Date: 20131028
  Receipt Date: 20131028
  Transmission Date: 20140711
  Serious: Yes (Other)
  Sender: FDA-Public Use
  Company Number: 2013US001663

PATIENT
  Age: 75 Year
  Sex: Male
  Weight: 95 kg

DRUGS (9)
  1. ICLUSIG [Suspect]
     Indication: ACUTE LYMPHOCYTIC LEUKAEMIA
     Route: 048
     Dates: start: 20130507
  2. NASONEX (MOMETASONE FUROATE) [Concomitant]
  3. ALDACTONE (SPIRONOLACTONE) [Concomitant]
  4. METOPROLOL (METOPROLOL) [Concomitant]
  5. AMARYL (GLIMEPIRIDE) [Concomitant]
  6. NEXIUM I.V. [Concomitant]
  7. TORSEMIDE (TORSEMIDE) [Concomitant]
  8. DILTIAZEM (DILTIAZEM) [Concomitant]
  9. TRAVATAN (TRAVOPROST) [Concomitant]

REACTIONS (2)
  - Platelet count decreased [None]
  - Drug ineffective [None]
